FAERS Safety Report 10078816 (Version 2)
Quarter: 2014Q2

REPORT INFORMATION
  Report Type: Spontaneous
  Country: GB (occurrence: None)
  Receive Date: 20140411
  Receipt Date: 20140429
  Transmission Date: 20141212
  Serious: Yes (Congenital Anomaly, Other)
  Sender: FDA-Public Use
  Company Number: AUR-APL-2014-04266

PATIENT
  Age: 1 Day
  Sex: Male
  Weight: 3.96 kg

DRUGS (3)
  1. LAMOTRIGINE [Suspect]
     Indication: EPILEPSY
     Dosage: 200 MG (100 MG, 2 IN 1 D ) , TRANSPLACENTAL
     Route: 064
     Dates: start: 20120608, end: 20130307
  2. FOLSAURE [Concomitant]
  3. ORFIRIL [Suspect]
     Indication: EPILEPSY
     Dosage: 1 D
     Route: 064
     Dates: start: 20120608, end: 20130307

REACTIONS (19)
  - Neonatal respiratory distress syndrome [None]
  - Hypotonia neonatal [None]
  - Agitation neonatal [None]
  - Atrial septal defect [None]
  - Microphthalmos [None]
  - Dysmorphism [None]
  - Cardiac septal hypertrophy [None]
  - Hypoglycaemia neonatal [None]
  - Foetal macrosomia [None]
  - Feeling jittery [None]
  - Somnolence [None]
  - Hypertelorism of orbit [None]
  - Skull malformation [None]
  - Congenital nose malformation [None]
  - Low set ears [None]
  - Dysplasia [None]
  - Foetal exposure during pregnancy [None]
  - Caesarean section [None]
  - Microphthalmos [None]
